FAERS Safety Report 5195354-5 (Version None)
Quarter: 2006Q4

REPORT INFORMATION
  Report Type: 
  Country: None (occurrence: None)
  Receive Date: 20061229
  Receipt Date: 20061221
  Transmission Date: 20070319
  Serious: Yes (Other)
  Sender: FDA-Public Use
  Company Number: FR-PFIZER INC-2006155124

PATIENT
  Age: 70 Year
  Sex: Female

DRUGS (1)
  1. AMLOR [Suspect]
     Indication: HYPERTENSION
     Dates: start: 20061219, end: 20061219

REACTIONS (4)
  - BLOOD PRESSURE DECREASED [None]
  - COLD SWEAT [None]
  - HYPOGLYCAEMIA [None]
  - MALAISE [None]
